FAERS Safety Report 18913429 (Version 2)
Quarter: 2021Q3

REPORT INFORMATION
  Report Type: Spontaneous
  Country: SG (occurrence: SG)
  Receive Date: 20210218
  Receipt Date: 20210713
  Transmission Date: 20211014
  Serious: Yes (Other)
  Sender: FDA-Public Use
  Company Number: SG-TEVA-2021-SG-1874697

PATIENT
  Age: 44 Year
  Sex: Female

DRUGS (1)
  1. AMOXICILLIN. [Suspect]
     Active Substance: AMOXICILLIN
     Indication: DRUG PROVOCATION TEST
     Dosage: (CUMULATIVE DOSE OF 750MG)
     Route: 048

REACTIONS (2)
  - Type I hypersensitivity [Recovering/Resolving]
  - Urticaria [Recovering/Resolving]
